FAERS Safety Report 15662989 (Version 2)
Quarter: 2019Q2

REPORT INFORMATION
  Report Type: Spontaneous
  Country: US (occurrence: US)
  Receive Date: 20181127
  Receipt Date: 20190402
  Transmission Date: 20190711
  Serious: Yes (Other)
  Sender: FDA-Public Use
  Company Number: US-SA-2018SA321978

PATIENT
  Age: 38 Year
  Sex: Female
  Weight: 114 kg

DRUGS (4)
  1. ADRIAMYCIN [Concomitant]
     Active Substance: DOXORUBICIN HYDROCHLORIDE
     Dosage: 110 MG, UNK
  2. TAXOTERE [Suspect]
     Active Substance: DOCETAXEL
     Indication: BREAST CANCER
     Dosage: 170 MG, Q3W
     Route: 042
     Dates: start: 20110616, end: 20110616
  3. TAXOTERE [Suspect]
     Active Substance: DOCETAXEL
     Dosage: 170 UNK, QCY
     Route: 042
     Dates: start: 20111117, end: 20111117
  4. NEOSAR [Concomitant]
     Active Substance: CYCLOPHOSPHAMIDE
     Dosage: 1100 MG, UNK

REACTIONS (3)
  - Alopecia [Not Recovered/Not Resolved]
  - Emotional distress [Unknown]
  - Psychological trauma [Unknown]

NARRATIVE: CASE EVENT DATE: 201111
